FAERS Safety Report 5973264-0 (Version None)
Quarter: 2008Q4

REPORT INFORMATION
  Report Type: 
  Country: None (occurrence: None)
  Receive Date: 20081126
  Receipt Date: 20071128
  Transmission Date: 20090506
  Serious: Yes (Hospitalization)
  Sender: FDA-Public Use
  Company Number: 2007BH009379

PATIENT
  Age: 71 Year
  Sex: Male
  Weight: 130 kg

DRUGS (3)
  1. DIANEAL [Suspect]
     Indication: PERITONEAL DIALYSIS
     Dosage: EVERY DAY; IP
     Route: 033
     Dates: start: 20060825
  2. DIANEAL [Suspect]
     Indication: PERITONEAL DIALYSIS
     Dosage: IP
     Route: 033
  3. HEPARIN [Concomitant]

REACTIONS (5)
  - ASTHENIA [None]
  - CONSTIPATION [None]
  - DEHYDRATION [None]
  - PERITONITIS BACTERIAL [None]
  - PYREXIA [None]
